FAERS Safety Report 7378178-X (Version None)
Quarter: 2011Q1

REPORT INFORMATION
  Report Type: 
  Country: None (occurrence: None)
  Receive Date: 20110328
  Receipt Date: 20110316
  Transmission Date: 20110831
  Serious: Yes (Death, Hospitalization)
  Sender: FDA-Public Use
  Company Number: A0753352A

PATIENT
  Age: 36 Year
  Sex: Male
  Weight: 106.4 kg

DRUGS (6)
  1. AVANDIA [Suspect]
     Indication: TYPE 2 DIABETES MELLITUS
     Dosage: 8MG THREE TIMES PER DAY
     Route: 048
     Dates: start: 20000201, end: 20040401
  2. OXYCONTIN [Concomitant]
  3. METFORMIN [Concomitant]
  4. CLONIDINE [Concomitant]
  5. VIOXX [Concomitant]
  6. GLUCOPHAGE [Concomitant]

REACTIONS (8)
  - CARDIAC ARREST [None]
  - CEREBROVASCULAR DISORDER [None]
  - TRANSIENT ISCHAEMIC ATTACK [None]
  - CARDIAC FAILURE CONGESTIVE [None]
  - CAROTID ARTERY DISEASE [None]
  - HEART DISEASE CONGENITAL [None]
  - CARDIOVASCULAR DISORDER [None]
  - CARDIAC VALVE DISEASE [None]
